FAERS Safety Report 17306259 (Version 1)
Quarter: 2020Q1

REPORT INFORMATION
  Report Type: Spontaneous
  Country: US (occurrence: US)
  Receive Date: 20200123
  Receipt Date: 20200123
  Transmission Date: 20200409
  Serious: No
  Sender: FDA-Public Use
  Company Number: US-US WORLDMEDS, LLC-USW201906-001165

PATIENT
  Age: 83 Year
  Sex: Female

DRUGS (3)
  1. FIBERCON [Concomitant]
     Active Substance: CALCIUM POLYCARBOPHIL
  2. NADOLOL. [Suspect]
     Active Substance: NADOLOL
     Indication: SLEEP DISORDER
  3. TEMAZEPAM. [Suspect]
     Active Substance: TEMAZEPAM
     Indication: SLEEP DISORDER

REACTIONS (1)
  - Skin reaction [Unknown]
